FAERS Safety Report 11036592 (Version 1)
Quarter: 2015Q2

REPORT INFORMATION
  Report Type: Spontaneous
  Country: IT (occurrence: IT)
  Receive Date: 20150416
  Receipt Date: 20150416
  Transmission Date: 20150821
  Serious: Yes (Hospitalization)
  Sender: FDA-Public Use
  Company Number: IT-AUROBINDO-AUR-APL-2015-03277

PATIENT
  Age: 17 Day
  Sex: Male
  Weight: 3 kg

DRUGS (3)
  1. ASPIRINA [Concomitant]
     Active Substance: ASPIRIN
     Indication: HEART DISEASE CONGENITAL
     Dosage: 15 MG, UNK
     Route: 048
     Dates: start: 20140313, end: 20141218
  2. FUROSEMIDE. [Concomitant]
     Active Substance: FUROSEMIDE
     Indication: HEART DISEASE CONGENITAL
     Dosage: 6 MG, UNK
     Route: 048
     Dates: start: 20140305, end: 20141218
  3. METOPROLOL [Suspect]
     Active Substance: METOPROLOL
     Indication: HEART DISEASE CONGENITAL
     Dosage: 6 MG, DAILY
     Route: 048
     Dates: start: 20140313, end: 20141218

REACTIONS (2)
  - Apnoea [Recovered/Resolved]
  - Pallor [Recovered/Resolved]

NARRATIVE: CASE EVENT DATE: 20140322
